FAERS Safety Report 4435122-2 (Version None)
Quarter: 2004Q3

REPORT INFORMATION
  Report Type: 
  Country: None (occurrence: None)
  Receive Date: 20040826
  Receipt Date: 20040811
  Transmission Date: 20050211
  Serious: Yes (Hospitalization)
  Sender: FDA-Public Use
  Company Number: A02200402456

PATIENT
  Age: 75 Year
  Sex: Female

DRUGS (5)
  1. ZOLPIDEM TARTRATE [Suspect]
     Dosage: 5 MG OD
     Route: 048
     Dates: end: 20040329
  2. EFFERALGAN CODEINE - (PARACETAMOL/CODEINE) - TABLET [Suspect]
     Dosage: 1000 MG
     Route: 048
     Dates: end: 20040329
  3. LEXOMIL - (BROMAZEPAM) - TABLET [Suspect]
     Dosage: 1.5 MG OD
     Route: 048
     Dates: end: 20040329
  4. OXAZEPAM [Suspect]
     Dosage: 75 MG
     Route: 048
     Dates: end: 20040329
  5. FORLAX (MACROGOL) [Concomitant]

REACTIONS (5)
  - DIFFICULTY IN WALKING [None]
  - EXTRAPYRAMIDAL DISORDER [None]
  - FALL [None]
  - GENERAL PHYSICAL CONDITION ABNORMAL [None]
  - WEIGHT DECREASED [None]
